FAERS Safety Report 19153242 (Version 1)
Quarter: 2021Q2

REPORT INFORMATION
  Report Type: Spontaneous
  Country: US (occurrence: US)
  Receive Date: 20210419
  Receipt Date: 20210419
  Transmission Date: 20210717
  Serious: Yes (Life-Threatening, Hospitalization)
  Sender: FDA-Public Use
  Company Number: US-MYLANLABS-2021M1021991

PATIENT
  Age: 40 Year
  Sex: Male

DRUGS (2)
  1. DIPHENHYDRAMINE. [Concomitant]
     Active Substance: DIPHENHYDRAMINE
     Indication: PRODUCT USED FOR UNKNOWN INDICATION
     Route: 065
  2. LOPERAMIDE [Suspect]
     Active Substance: LOPERAMIDE
     Indication: DRUG WITHDRAWAL SYNDROME
     Dosage: 2 MILLIGRAM, QD (100 TABLETS) 5YEARS
     Route: 048

REACTIONS (10)
  - Toxicity to various agents [Unknown]
  - Torsade de pointes [Recovered/Resolved]
  - Electrocardiogram QT prolonged [Unknown]
  - Sinus tachycardia [Unknown]
  - Mental status changes [Unknown]
  - Hyperthermia [Unknown]
  - Intentional product misuse [Unknown]
  - Overdose [Unknown]
  - Pulseless electrical activity [Recovering/Resolving]
  - Cardiac arrest [Recovered/Resolved]
